FAERS Safety Report 6573300-7 (Version None)
Quarter: 2010Q1

REPORT INFORMATION
  Report Type: 
  Country: None (occurrence: None)
  Receive Date: 20100208
  Receipt Date: 20100128
  Transmission Date: 20100710
  Serious: Yes (Other)
  Sender: FDA-Public Use
  Company Number: US-PFIZER INC-2010011929

PATIENT
  Age: 77 Year
  Sex: Female
  Weight: 56.4 kg

DRUGS (2)
  1. BLINDED *PLACEBO [Suspect]
     Indication: NON-SMALL CELL LUNG CANCER
     Dosage: 37.5 MG, QD, CYCLIC
     Route: 048
     Dates: start: 20091103
  2. BLINDED SUNITINIB MALATE [Suspect]
     Indication: NON-SMALL CELL LUNG CANCER
     Dosage: 37.5 MG, QD, CYCLIC
     Route: 048
     Dates: start: 20091103

REACTIONS (3)
  - DIZZINESS [None]
  - URINARY TRACT INFECTION [None]
  - VISION BLURRED [None]
